FAERS Safety Report 6536436-2 (Version None)
Quarter: 2010Q1

REPORT INFORMATION
  Report Type: 
  Country: None (occurrence: None)
  Receive Date: 20100113
  Receipt Date: 20100105
  Transmission Date: 20100710
  Serious: Yes (Hospitalization)
  Sender: FDA-Public Use
  Company Number: GXKR2010US00489

PATIENT
  Age: 67 Year
  Sex: Female

DRUGS (6)
  1. FLECAINIDE (NGX) [Suspect]
     Indication: ATRIAL TACHYCARDIA
     Dosage: 100 MG, BID
     Route: 048
  2. ACETYLSALICYLIC ACID [Concomitant]
     Dosage: 81 MG/DAY
     Route: 048
  3. METOPROLOL SUCCINATE [Concomitant]
     Dosage: 50 MG/DAY
     Route: 048
  4. INSULIN ASPART [Concomitant]
     Dosage: 4 UNIT IN A.M., 6-8 UNITS AT NOON, 5-6 UNITS IN P.M.
  5. INSULIN GLARGINE [Concomitant]
     Dosage: 14 U, QHS
  6. LISINOPRIL [Concomitant]
     Dosage: 20 MG/DAY
     Route: 048

REACTIONS (5)
  - ASTHENIA [None]
  - DIZZINESS [None]
  - FLUID INTAKE RESTRICTION [None]
  - HYPONATRAEMIA [None]
  - MALAISE [None]
